FAERS Safety Report 8814296 (Version 3)
Quarter: 2013Q1

REPORT INFORMATION
  Report Type: Spontaneous
  Country: JP (occurrence: None)
  Receive Date: 20120925
  Receipt Date: 20121015
  Transmission Date: 20140127
  Serious: Yes (Life-Threatening, Other)
  Sender: FDA-Public Use
  Company Number: 2012S1001084

PATIENT
  Age: 61 Year
  Sex: Female
  Weight: 52.5 kg

DRUGS (9)
  1. LIVALO (PITAVASTATIN) TABLETS 2 MG [Suspect]
     Indication: HYPERCHOLESTEROLAEMIA
     Route: 048
     Dates: start: 20120806, end: 20120910
  2. WARFARIN (WARFARIN) [Suspect]
     Indication: MITRAL VALVE REPLACEMENT
     Route: 048
     Dates: end: 20120911
  3. WARFARIN (WARFARIN) [Suspect]
     Indication: ATRIAL FIBRILLATION
     Route: 048
     Dates: end: 20120911
  4. BLOPRESS [Concomitant]
  5. NATRIX [Concomitant]
  6. NORVASC [Concomitant]
  7. ANGINAL [Concomitant]
  8. NEUQUINON [Concomitant]
  9. ARTIST [Concomitant]

REACTIONS (1)
  - Haemorrhage subcutaneous [None]
